FAERS Safety Report 5980202-3 (Version None)
Quarter: 2008Q4

REPORT INFORMATION
  Report Type: 
  Country: None (occurrence: None)
  Receive Date: 20081202
  Receipt Date: 20081202
  Transmission Date: 20090506
  Serious: No
  Sender: FDA-Public Use
  Company Number: None

PATIENT
  Sex: Female

DRUGS (1)
  1. GADOBENATE DIMEGLUMINE BRACCO DIAGNOSTICS [Suspect]
     Indication: NUCLEAR MAGNETIC RESONANCE IMAGING
     Dates: start: 20081129, end: 20081129

REACTIONS (2)
  - NAUSEA [None]
  - VOMITING [None]
